FAERS Safety Report 8887279 (Version 3)
Quarter: 2012Q4

REPORT INFORMATION
  Report Type: 
  Country: US (occurrence: None)
  Receive Date: 20121105
  Receipt Date: 20121127
  Transmission Date: 20130627
  Serious: Yes (Hospitalization)
  Sender: FDA-Public Use
  Company Number: None

PATIENT
  Age: 32 Year
  Sex: Male
  Weight: 124.74 kg

DRUGS (3)
  1. TRIAMCINOLONE [Suspect]
     Dosage: 1x - shot in knee
     Dates: start: 20120807, end: 20120807
  2. KENALOG [Suspect]
  3. TRIAMCINOLONE [Suspect]

REACTIONS (2)
  - Arthritis infective [None]
  - Staphylococcal infection [None]
